FAERS Safety Report 8801968 (Version 1)
Quarter: 2012Q4

REPORT INFORMATION
  Report Type: 
  Country: GB (occurrence: GB)
  Receive Date: 20120921
  Receipt Date: 20120921
  Transmission Date: 20130627
  Serious: Yes (Other)
  Sender: FDA-Public Use
  Company Number: GB-PFIZER INC-2012229035

PATIENT
  Age: 92 Year
  Sex: Male

DRUGS (1)
  1. DETRUSITOL [Suspect]
     Indication: POLLAKIURIA
     Dosage: 2 mg, UNK

REACTIONS (1)
  - Dysphagia [Unknown]
